FAERS Safety Report 5201956-X (Version None)
Quarter: 2007Q1

REPORT INFORMATION
  Report Type: 
  Country: None (occurrence: None)
  Receive Date: 20070104
  Receipt Date: 20070104
  Transmission Date: 20070707
  Serious: Yes (Hospitalization)
  Sender: FDA-Public Use
  Company Number: None

PATIENT
  Age: 40 Year
  Sex: Female

DRUGS (8)
  1. IMATINIB MESYLATE [Suspect]
     Indication: ANAPLASTIC ASTROCYTOMA
     Dosage: 500 MGBID
     Dates: start: 20061114, end: 20061230
  2. PTK [Suspect]
     Indication: ANAPLASTIC ASTROCYTOMA
     Dosage: 1250MG BID
     Dates: start: 20061108, end: 20061230
  3. HYDROXYUREA [Suspect]
     Indication: ANAPLASTIC ASTROCYTOMA
     Dosage: 500 MGBID
     Dates: start: 20061114, end: 20061230
  4. NEXIUM [Concomitant]
  5. DEXAMETHASONE [Concomitant]
  6. TRILEPTAL [Concomitant]
  7. PROMETHAZINE [Concomitant]
  8. ZOFRAN [Concomitant]

REACTIONS (9)
  - ANAPLASTIC ASTROCYTOMA [None]
  - APHASIA [None]
  - COMPUTERISED TOMOGRAM ABNORMAL [None]
  - CONVULSION [None]
  - DISEASE PROGRESSION [None]
  - EXTENSOR PLANTAR RESPONSE [None]
  - HEMIPLEGIA [None]
  - LETHARGY [None]
  - MUSCULAR WEAKNESS [None]
